FAERS Safety Report 5576275-2 (Version None)
Quarter: 2007Q4

REPORT INFORMATION
  Report Type: 
  Country: None (occurrence: None)
  Receive Date: 20071228
  Receipt Date: 20071217
  Transmission Date: 20080405
  Serious: Yes (Other)
  Sender: FDA-Public Use
  Company Number: DE-ROCHE-526040

PATIENT
  Age: 77 Year
  Sex: Male
  Weight: 85 kg

DRUGS (7)
  1. BONIVA [Suspect]
     Indication: OSTEOPOROSIS
     Dosage: STRENGTH: 3MG/3ML
     Route: 042
     Dates: start: 20061214, end: 20070924
  2. AREDIA [Concomitant]
     Dates: start: 20040512, end: 20060602
  3. FOSAMAX [Concomitant]
  4. CALCIUM/VITAMIN D [Concomitant]
  5. ACETYLSALICYLIC ACID SRT [Concomitant]
  6. SIMVASTATIN [Concomitant]
  7. ENALAPRIL [Concomitant]

REACTIONS (1)
  - RESORPTION BONE INCREASED [None]
